FAERS Safety Report 5762900-X (Version None)
Quarter: 2008Q2

REPORT INFORMATION
  Report Type: 
  Country: None (occurrence: None)
  Receive Date: 20080609
  Receipt Date: 20080401
  Transmission Date: 20081010
  Serious: No
  Sender: FDA-Public Use
  Company Number: US-BAYER-200712988BCC

PATIENT
  Age: 64 Year
  Sex: Male
  Weight: 104 kg

DRUGS (14)
  1. ALEVE [Suspect]
     Indication: MYOSITIS
     Dosage: TOTAL DAILY DOSE: 220 MG  UNIT DOSE: 220 MG
     Route: 048
     Dates: start: 20070914
  2. METFORMIN HCL [Concomitant]
  3. LISINOPRIL [Concomitant]
  4. TRICOR [Concomitant]
  5. GLYBURIDE [Concomitant]
  6. ATENOLOL [Concomitant]
  7. ISOPHANE INSULIN [Concomitant]
  8. REGULAR INSULIN [Concomitant]
  9. ULTRAM [Concomitant]
  10. ASPIRIN [Concomitant]
  11. TRICOR [Concomitant]
  12. DIOVAN [Concomitant]
  13. PRILOSEC [Concomitant]
  14. HUMULIN 70/30 [Concomitant]

REACTIONS (1)
  - HANGOVER [None]
